FAERS Safety Report 6957957-4 (Version None)
Quarter: 2010Q3

REPORT INFORMATION
  Report Type: 
  Country: None (occurrence: None)
  Receive Date: 20100831
  Receipt Date: 20100830
  Transmission Date: 20110219
  Serious: No
  Sender: FDA-Public Use
  Company Number: DE-EISAI INC.-E2090-01254-SPO-DE

PATIENT
  Age: 23 Year
  Sex: Male
  Weight: 75 kg

DRUGS (4)
  1. ZONEGRAN [Suspect]
     Indication: EPILEPSY
     Route: 048
  2. ZONEGRAN [Interacting]
     Route: 048
  3. ZONEGRAN [Interacting]
     Dosage: UNKNOWN
     Route: 048
     Dates: end: 20100101
  4. LAMOTRIGINE [Interacting]
     Indication: EPILEPSY
     Route: 048

REACTIONS (4)
  - DRUG INTERACTION [None]
  - ECCHYMOSIS [None]
  - PETECHIAE [None]
  - PRURITUS [None]
